FAERS Safety Report 5919739-1 (Version None)
Quarter: 2008Q4

REPORT INFORMATION
  Report Type: 
  Country: None (occurrence: None)
  Receive Date: 20081015
  Receipt Date: 20081013
  Transmission Date: 20090506
  Serious: No
  Sender: FDA-Public Use
  Company Number: US-B.I. PHARMACEUTICALS,INC./RIDGEFIELD-2008-BP-14652BP

PATIENT
  Sex: Female

DRUGS (3)
  1. ZANTAC [Suspect]
     Indication: ABDOMINAL DISCOMFORT
     Dosage: 150MG
     Route: 048
     Dates: start: 20080915, end: 20080916
  2. ZANTAC [Suspect]
     Indication: GASTROOESOPHAGEAL REFLUX DISEASE
  3. PROTONIX [Concomitant]

REACTIONS (1)
  - ABDOMINAL PAIN UPPER [None]
